FAERS Safety Report 17428460 (Version 1)
Quarter: 2020Q1

REPORT INFORMATION
  Report Type: Spontaneous
  Country: US (occurrence: US)
  Receive Date: 20200218
  Receipt Date: 20200218
  Transmission Date: 20200409
  Serious: Yes (Hospitalization)
  Sender: FDA-Public Use
  Company Number: US-LEADING PHARMA LLC-US-2020LEALIT00022

PATIENT
  Age: 48 Year
  Sex: Female

DRUGS (4)
  1. LORAZEPAM TABLETS USP [Suspect]
     Active Substance: LORAZEPAM
  2. ARIPIPRAZOLE. [Interacting]
     Active Substance: ARIPIPRAZOLE
  3. HYDROCORTISONE. [Concomitant]
     Active Substance: HYDROCORTISONE
  4. LEVOTHYROXINE. [Concomitant]
     Active Substance: LEVOTHYROXINE

REACTIONS (4)
  - Agitation [Recovering/Resolving]
  - Screaming [Recovering/Resolving]
  - Delirium [Unknown]
  - Psychotic disorder [Unknown]
